FAERS Safety Report 8917286 (Version 2)
Quarter: 2013Q1

REPORT INFORMATION
  Report Type: Report from Study
  Country: JP (occurrence: JP)
  Receive Date: 20121120
  Receipt Date: 20130228
  Transmission Date: 20140127
  Serious: Yes (Other)
  Sender: FDA-Public Use
  Company Number: JP-GENZYME-FLUD-1001596

PATIENT
  Age: 36 Year
  Sex: Male
  Weight: 63.5 kg

DRUGS (3)
  1. FLUDARA [Suspect]
     Indication: PRODUCT USED FOR UNKNOWN INDICATION
     Dosage: 52 MG, UNK, (FIVE DAYS/ CYCLE)
     Route: 065
     Dates: start: 20120904, end: 20120908
  2. CYTARABINE [Suspect]
     Indication: PRODUCT USED FOR UNKNOWN INDICATION
     Dosage: 3480 MG, UNK, (SIX DAYS/ CYCLE)
     Route: 065
     Dates: start: 20120903, end: 20120908
  3. FILGRASTIM [Suspect]
     Indication: PRODUCT USED FOR UNKNOWN INDICATION
     Dosage: 300 MCG, QD
     Route: 065
     Dates: start: 20120903, end: 20120925

REACTIONS (4)
  - Febrile neutropenia [Recovered/Resolved]
  - Sepsis [Recovered/Resolved]
  - Thrombocytopenia [Unknown]
  - Leukopenia [Unknown]
